FAERS Safety Report 21191572 (Version 2)
Quarter: 2022Q3

REPORT INFORMATION
  Report Type: Other
  Country: CZ (occurrence: None)
  Receive Date: 20220809
  Receipt Date: 20220816
  Transmission Date: 20221026
  Serious: Yes (Other)
  Sender: FDA-Public Use
  Company Number: CZ-ROCHE-3153771

PATIENT
  Age: 55 Year
  Sex: Male

DRUGS (3)
  1. RITUXIMAB [Suspect]
     Active Substance: RITUXIMAB
     Indication: Chronic lymphocytic leukaemia
     Dosage: 1 APPLICATION
     Route: 041
  2. RITUXIMAB [Suspect]
     Active Substance: RITUXIMAB
     Indication: Chronic lymphocytic leukaemia
     Dosage: 5 APPLICATIONS
     Route: 058
  3. VENETOCLAX [Suspect]
     Active Substance: VENETOCLAX
     Indication: Chronic lymphocytic leukaemia
     Dosage: RAMP-UP TO 400 MG/24 MONTHS
     Route: 065

REACTIONS (6)
  - Clostridium difficile colitis [Recovered/Resolved]
  - Hyperkalaemia [Recovered/Resolved]
  - Hyperphosphataemia [Recovered/Resolved]
  - Hyperuricaemia [Recovered/Resolved]
  - Respiratory tract infection [Recovered/Resolved]
  - Rotavirus infection [Recovered/Resolved]
